FAERS Safety Report 20887430 (Version 1)
Quarter: 2022Q2

REPORT INFORMATION
  Report Type: Spontaneous
  Country: CO (occurrence: CO)
  Receive Date: 20220528
  Receipt Date: 20220528
  Transmission Date: 20220721
  Serious: Yes (Death, Other)
  Sender: FDA-Public Use
  Company Number: CO-AMGEN-COLSP2022090365

PATIENT
  Age: 69 Year
  Sex: Male

DRUGS (5)
  1. MVASI [Suspect]
     Active Substance: BEVACIZUMAB-AWWB
     Indication: Colon cancer
     Dosage: 327 MILLIGRAM DAY 1 AND DAY 15
     Route: 065
     Dates: start: 20220120, end: 20220203
  2. LEUCOVORIN CALCIUM [Concomitant]
     Active Substance: LEUCOVORIN CALCIUM
     Indication: Colon cancer
     Dosage: 640 MILLIGRAM DAY 1 AND DAY 15
     Dates: start: 20220120, end: 20220315
  3. FLUOROURACIL [Concomitant]
     Active Substance: FLUOROURACIL
     Indication: Colon cancer
     Dosage: 640 MILLIGRAM DAY 1 AND DAY 15
     Dates: start: 20220120, end: 20220315
  4. FLUOROURACIL [Concomitant]
     Active Substance: FLUOROURACIL
     Dosage: 4056 MILLIGRAM DAY 1 AND DAY 15
     Dates: start: 20220120, end: 20220315
  5. OXALIPLATIN [Concomitant]
     Active Substance: OXALIPLATIN
     Indication: Colon cancer
     Dosage: 135 MILLIGRAM, DAY I AND DAY 15
     Dates: start: 20220120, end: 20220315

REACTIONS (5)
  - Death [Fatal]
  - Enterovesical fistula [Unknown]
  - Colon cancer metastatic [Unknown]
  - Haematuria [Unknown]
  - General physical health deterioration [Unknown]

NARRATIVE: CASE EVENT DATE: 20220507
